FAERS Safety Report 19931647 (Version 1)
Quarter: 2021Q4

REPORT INFORMATION
  Report Type: Other
  Country: CA (occurrence: CA)
  Receive Date: 20211008
  Receipt Date: 20211008
  Transmission Date: 20220303
  Serious: Yes (Hospitalization, Other)
  Sender: FDA-Public Use
  Company Number: CA-APOTEX-2021AP043975

PATIENT
  Age: 60 Year
  Sex: Female
  Weight: 35 kg

DRUGS (13)
  1. MIDODRINE [Suspect]
     Active Substance: MIDODRINE
     Indication: Hypotension
     Dosage: 1 DOSAGE FORM, BID
     Route: 048
  2. MIDODRINE [Suspect]
     Active Substance: MIDODRINE
     Dosage: 5 MILLIGRAM, BID
     Route: 048
  3. MIDODRINE [Suspect]
     Active Substance: MIDODRINE
     Dosage: 10 MILLIGRAM, TID
     Route: 048
  4. MIDODRINE [Suspect]
     Active Substance: MIDODRINE
     Dosage: 5 MILLIGRAM, QID
     Route: 048
  5. CLARITHROMYCIN [Suspect]
     Active Substance: CLARITHROMYCIN
     Indication: Product used for unknown indication
     Dosage: UNK
     Route: 065
  6. PEPTO-BISMOL [Suspect]
     Active Substance: BISMUTH SUBSALICYLATE
     Indication: Diarrhoea
     Dosage: UNK, QID
     Route: 065
  7. PEPTO-BISMOL [Suspect]
     Active Substance: BISMUTH SUBSALICYLATE
     Indication: Constipation
  8. TEGSEDI [Suspect]
     Active Substance: INOTERSEN SODIUM
     Indication: Hereditary neuropathic amyloidosis
     Dosage: 284 MILLIGRAM, Q.WK.
     Route: 058
  9. ASCORBIC ACID [Concomitant]
     Active Substance: ASCORBIC ACID
     Indication: Product used for unknown indication
     Dosage: UNK
     Route: 065
  10. BENZOCAINE [Concomitant]
     Active Substance: BENZOCAINE
     Indication: Product used for unknown indication
     Dosage: UNK
     Route: 065
  11. CLARITHROMYCIN [Concomitant]
     Active Substance: CLARITHROMYCIN
     Indication: Product used for unknown indication
     Dosage: UNK
     Route: 065
  12. VENIXXA [Concomitant]
     Indication: Product used for unknown indication
     Dosage: UNK
     Route: 065
  13. CHOLECALCIFEROL [Concomitant]
     Active Substance: CHOLECALCIFEROL
     Indication: Product used for unknown indication
     Dosage: UNK
     Route: 065

REACTIONS (25)
  - Adverse drug reaction [Unknown]
  - Staphylococcal infection [Unknown]
  - Tongue discolouration [Unknown]
  - Pulse abnormal [Unknown]
  - Faeces discoloured [Unknown]
  - Discomfort [Unknown]
  - Disturbance in attention [Unknown]
  - Abdominal distension [Unknown]
  - Pain [Unknown]
  - Swelling [Unknown]
  - Urinary tract infection [Unknown]
  - Ultrasound kidney abnormal [Unknown]
  - Fatigue [Unknown]
  - Irritable bowel syndrome [Unknown]
  - Malaise [Unknown]
  - Hypotension [Unknown]
  - Blood pressure increased [Unknown]
  - Constipation [Unknown]
  - Diarrhoea [Unknown]
  - Asthenia [Unknown]
  - Dizziness [Unknown]
  - Gastrointestinal disorder [Unknown]
  - Headache [Unknown]
  - Nausea [Unknown]
  - Heart rate increased [Unknown]
